FAERS Safety Report 9067383 (Version 1)
Quarter: 2013Q1

REPORT INFORMATION
  Report Type: Report from Study
  Country: CA (occurrence: CA)
  Receive Date: 20130129
  Receipt Date: 20130129
  Transmission Date: 20140127
  Serious: Yes (Hospitalization)
  Sender: FDA-Public Use
  Company Number: CA-JNJFOC-20130111177

PATIENT
  Age: 59 None
  Sex: Female
  Weight: 58.97 kg

DRUGS (2)
  1. REMICADE [Suspect]
     Indication: CROHN^S DISEASE
     Dosage: LAST TREATMENT BEFORE ADVERSE EVENT IN MAY OR JUN-2012
     Route: 042
     Dates: start: 2012
  2. REMICADE [Suspect]
     Indication: CROHN^S DISEASE
     Dosage: LAST DOSE IN MAY/JUNE 2012
     Route: 042

REACTIONS (2)
  - Intestinal perforation [Unknown]
  - Abdominal infection [Unknown]
